FAERS Safety Report 20509152 (Version 1)
Quarter: 2022Q1

REPORT INFORMATION
  Report Type: Report from Study
  Country: IN (occurrence: IN)
  Receive Date: 20220223
  Receipt Date: 20220223
  Transmission Date: 20220423
  Serious: Yes (Other)
  Sender: FDA-Public Use
  Company Number: IN-NOVARTISPH-NVSC2022IN041002

PATIENT
  Age: 49 Year
  Sex: Female

DRUGS (1)
  1. CERTICAN [Suspect]
     Active Substance: EVEROLIMUS
     Indication: Renal transplant
     Dosage: 0.75 MG, BID
     Route: 065
     Dates: start: 20211226

REACTIONS (2)
  - Posterior reversible encephalopathy syndrome [Not Recovered/Not Resolved]
  - Transplant rejection [Not Recovered/Not Resolved]

NARRATIVE: CASE EVENT DATE: 20211226
